FAERS Safety Report 5631111-0 (Version None)
Quarter: 2008Q1

REPORT INFORMATION
  Report Type: 
  Country: None (occurrence: None)
  Receive Date: 20080219
  Receipt Date: 20080207
  Transmission Date: 20080703
  Serious: Yes (Disabling)
  Sender: FDA-Public Use
  Company Number: GB-PFIZER INC-2008013126

PATIENT
  Age: 57 Year
  Sex: Male
  Weight: 88 kg

DRUGS (9)
  1. CHANTIX [Suspect]
     Route: 048
     Dates: start: 20080111, end: 20080114
  2. ASPIRIN [Concomitant]
     Route: 048
  3. ATORVASTATIN CALCIUM [Concomitant]
     Route: 048
  4. BECLOMETHASONE DIPROPIONATE [Concomitant]
     Route: 055
  5. CO-DYDRAMOL [Concomitant]
     Route: 048
  6. LANSOPRAZOLE [Concomitant]
     Route: 048
  7. QUINAPRIL HCL [Concomitant]
  8. ALBUTEROL [Concomitant]
     Route: 055
  9. VERAPAMIL [Concomitant]

REACTIONS (3)
  - NECK PAIN [None]
  - POSTURE ABNORMAL [None]
  - VERTIGO [None]
